FAERS Safety Report 4888407-X (Version None)
Quarter: 2006Q1

REPORT INFORMATION
  Report Type: 
  Country: None (occurrence: None)
  Receive Date: 20060119
  Receipt Date: 20060110
  Transmission Date: 20060701
  Serious: Yes (Hospitalization)
  Sender: FDA-Public Use
  Company Number: 2006-01-0670

PATIENT
  Age: 62 Year
  Sex: Female

DRUGS (2)
  1. NASONEX [Suspect]
     Dosage: NASAL SPRAY
     Route: 045
  2. ALLEGRA [Suspect]
     Indication: ASTHMA
     Dosage: 180 MG QD ORAL
     Route: 048
     Dates: start: 20051101

REACTIONS (2)
  - LUNG DISORDER [None]
  - RESPIRATORY DISORDER [None]
